FAERS Safety Report 6436799-2 (Version None)
Quarter: 2009Q4

REPORT INFORMATION
  Report Type: 
  Country: None (occurrence: None)
  Receive Date: 20091109
  Receipt Date: 20091027
  Transmission Date: 20100525
  Serious: No
  Sender: FDA-Public Use
  Company Number: 2009011885

PATIENT
  Sex: Female

DRUGS (2)
  1. FENTORA [Suspect]
     Indication: PORPHYRIA ACUTE
     Dosage: 200 MCG (200 MCG, 1 IN 1 AS REQUIRED), BU
     Route: 002
  2. STADOL [Concomitant]

REACTIONS (2)
  - CONTRAINDICATION TO MEDICAL TREATMENT [None]
  - UNDERDOSE [None]
